FAERS Safety Report 18537957 (Version 3)
Quarter: 2020Q4

REPORT INFORMATION
  Report Type: Report from Study
  Country: BR (occurrence: BR)
  Receive Date: 20201123
  Receipt Date: 20201210
  Transmission Date: 20210114
  Serious: Yes (Life-Threatening, Hospitalization, Other)
  Sender: FDA-Public Use
  Company Number: BR-GILEAD-2020-0489864

PATIENT
  Age: 67 Year
  Sex: Female
  Weight: 85 kg

DRUGS (127)
  1. VANCOMYCIN [Concomitant]
     Active Substance: VANCOMYCIN
     Dosage: 500 MG
     Dates: start: 20200824, end: 20200825
  2. ENOXAPARIN [Concomitant]
     Active Substance: ENOXAPARIN
     Route: 065
     Dates: start: 20200728, end: 20200729
  3. ENOXAPARIN [Concomitant]
     Active Substance: ENOXAPARIN
     Dosage: ONGOING
     Route: 065
     Dates: start: 20200730, end: 20200823
  4. LEVOTHYROXINE. [Concomitant]
     Active Substance: LEVOTHYROXINE
     Dosage: 100 UG
     Route: 065
     Dates: start: 20200802, end: 20200911
  5. PROPOFOL. [Concomitant]
     Active Substance: PROPOFOL
     Dosage: 50 ML
     Route: 065
     Dates: start: 20200830, end: 20200903
  6. FENTANYL. [Concomitant]
     Active Substance: FENTANYL
     Dosage: 50 UG
     Route: 065
     Dates: start: 20200831, end: 20200908
  7. CEFTAZIDIME. [Concomitant]
     Active Substance: CEFTAZIDIME
     Indication: PNEUMONIA BACTERIAL
     Dosage: 2 G
     Route: 065
     Dates: start: 20200902, end: 20200904
  8. FLEET ENEMA [Concomitant]
     Active Substance: SODIUM PHOSPHATE, DIBASIC\SODIUM PHOSPHATE, MONOBASIC
     Indication: CONSTIPATION
     Dosage: 1 UNIT
     Route: 065
     Dates: start: 20200807, end: 20200807
  9. BISACODYL. [Concomitant]
     Active Substance: BISACODYL
     Indication: CONSTIPATION
     Route: 065
     Dates: start: 20200807, end: 20200807
  10. CONCENTRATED RED CELLS [Concomitant]
     Active Substance: HUMAN RED BLOOD CELL
     Indication: ANAEMIA
     Dosage: 1 U
     Dates: start: 20200818, end: 20200818
  11. TOCILIZUMAB. [Suspect]
     Active Substance: TOCILIZUMAB
     Indication: COVID-19 PNEUMONIA
     Dosage: ON 31/JUL/2020, AT 17:58, SHE HAD HER MOST RECENT DOSE OF BLINDED TOCILIZUMAB PRIOR TO AE/SAE.
     Route: 042
     Dates: start: 20200731
  12. TOCILIZUMAB. [Suspect]
     Active Substance: TOCILIZUMAB
     Dosage: ON 31/JUL/2020, AT 17:58, SHE HAD HER MOST RECENT DOSE OF BLINDED TOCILIZUMAB PRIOR TO AE/SAE.
     Route: 042
     Dates: start: 20200731
  13. ENOXAPARIN [Concomitant]
     Active Substance: ENOXAPARIN
     Indication: COVID-19
     Dosage: ONGOING
     Route: 065
     Dates: start: 20200727, end: 20200727
  14. LEVOTHYROXINE. [Concomitant]
     Active Substance: LEVOTHYROXINE
     Dates: start: 20200728, end: 20200809
  15. POLYMYXIN B. [Concomitant]
     Active Substance: POLYMYXIN B
     Dosage: 50 MG
     Dates: start: 20200828, end: 20200906
  16. LEVOFLOXACINO [LEVOFLOXACIN] [Concomitant]
     Active Substance: LEVOFLOXACIN
     Indication: PNEUMONIA BACTERIAL
     Dosage: 500 G
     Dates: start: 20200812
  17. FENTANYL. [Concomitant]
     Active Substance: FENTANYL
     Dosage: 50 UG
     Route: 065
     Dates: start: 20200803, end: 20200803
  18. HEPARIN SODIUM. [Concomitant]
     Active Substance: HEPARIN SODIUM
  19. PREDNISONE. [Concomitant]
     Active Substance: PREDNISONE
     Indication: COVID-19
     Dosage: 30 MG
     Route: 065
     Dates: start: 20200811, end: 20200811
  20. ISOPHANE INSULIN [Concomitant]
     Active Substance: INSULIN NOS
  21. HYDROCORTISONE. [Concomitant]
     Active Substance: HYDROCORTISONE
     Dosage: 500 MG
     Route: 065
     Dates: start: 20200901, end: 20200901
  22. CEFTAZIDIME. [Concomitant]
     Active Substance: CEFTAZIDIME
     Dosage: 1 G
     Route: 065
     Dates: start: 20200902, end: 20200902
  23. CEFTAZIDIME. [Concomitant]
     Active Substance: CEFTAZIDIME
     Dosage: 1 MG
     Dates: start: 20200902, end: 20200902
  24. SUXAMETHONIUM [Concomitant]
     Active Substance: SUCCINYLCHOLINE
     Indication: SEDATION
     Dosage: 100 MG
     Route: 065
     Dates: start: 20200803, end: 20200803
  25. FLEET ENEMA [Concomitant]
     Active Substance: SODIUM PHOSPHATE, DIBASIC\SODIUM PHOSPHATE, MONOBASIC
     Dosage: 1 UNIT
     Route: 065
     Dates: start: 20200814, end: 20200814
  26. NPH INSULIN [Concomitant]
     Active Substance: INSULIN BEEF
     Indication: HYPERGLYCAEMIA
     Dosage: 5 IU
     Route: 065
     Dates: start: 20200813, end: 20200813
  27. LACTULONA [Concomitant]
     Indication: CONSTIPATION
     Dates: start: 20200814, end: 20200814
  28. VANCOMYCIN [Concomitant]
     Active Substance: VANCOMYCIN
     Dosage: 1 G
     Dates: start: 20200819, end: 20200819
  29. AZITHROMYCIN ANHYDROUS. [Concomitant]
     Active Substance: AZITHROMYCIN ANHYDROUS
     Indication: COVID-19 PNEUMONIA
     Dates: start: 20200726, end: 20200726
  30. ENOXAPARIN [Concomitant]
     Active Substance: ENOXAPARIN
     Dosage: 60 MG
     Route: 065
     Dates: start: 20200801, end: 20200803
  31. POLYMYXIN B. [Concomitant]
     Active Substance: POLYMYXIN B
     Indication: PNEUMONIA BACTERIAL
     Dates: start: 20200812
  32. POLYMYXIN B. [Concomitant]
     Active Substance: POLYMYXIN B
     Dosage: 50 MG
     Dates: start: 20200910, end: 20200910
  33. POLYMYXIN B. [Concomitant]
     Active Substance: POLYMYXIN B
     Dosage: 50 MG
     Dates: start: 20200828, end: 20200828
  34. CEFTRIAXONE. [Concomitant]
     Active Substance: CEFTRIAXONE
     Dosage: 2 G
     Dates: start: 20200902, end: 20200904
  35. PROPOFOL. [Concomitant]
     Active Substance: PROPOFOL
     Dosage: 5 AMPULE
     Route: 065
     Dates: start: 20200803, end: 20200803
  36. MIDAZOLAM. [Concomitant]
     Active Substance: MIDAZOLAM
     Dosage: 250 MG
     Route: 065
     Dates: start: 20200805, end: 20200805
  37. HYDROCORTISONE. [Concomitant]
     Active Substance: HYDROCORTISONE
     Indication: COVID-19
     Dosage: 50 MG
     Route: 065
     Dates: start: 20200814, end: 20200820
  38. ROCURONIUM [Concomitant]
     Active Substance: ROCURONIUM BROMIDE
     Dosage: 25 ML
     Route: 065
     Dates: start: 20200820, end: 20200820
  39. SODIUM BICARBONATE. [Concomitant]
     Active Substance: SODIUM BICARBONATE
     Dosage: 100 ML
     Dates: start: 20200815, end: 20200815
  40. INSULIN [Concomitant]
     Active Substance: INSULIN NOS
     Dosage: 2 UNIT
     Dates: start: 20200808, end: 20200808
  41. INSULIN [Concomitant]
     Active Substance: INSULIN NOS
     Dosage: 4 UNIT
     Dates: start: 20200907, end: 20200907
  42. PROMETHAZINE [Concomitant]
     Active Substance: PROMETHAZINE HYDROCHLORIDE
     Indication: INSOMNIA
     Dates: start: 20200731, end: 20200731
  43. LEVOFLOXACIN. [Concomitant]
     Active Substance: LEVOFLOXACIN
     Dates: start: 20200811, end: 20200811
  44. LEVOFLOXACIN. [Concomitant]
     Active Substance: LEVOFLOXACIN
     Dates: start: 20200901, end: 20200901
  45. CONCENTRATED RED CELLS [Concomitant]
     Active Substance: HUMAN RED BLOOD CELL
     Dosage: 2 U
     Dates: start: 20200829, end: 20200829
  46. NORADRENALINE [NOREPINEPHRINE] [Concomitant]
     Active Substance: NOREPINEPHRINE
     Dosage: 32 ML
     Dates: start: 20200831, end: 20200909
  47. DIPYRONE [Concomitant]
     Active Substance: DIPYRONE
     Indication: PULMONARY SEPSIS
     Dosage: 1 AMPOULE
     Dates: start: 20200823, end: 20200824
  48. MEROPENEM. [Concomitant]
     Active Substance: MEROPENEM
     Dosage: 500 MG
     Dates: start: 20200821, end: 20200821
  49. MEROPENEM. [Concomitant]
     Active Substance: MEROPENEM
     Dosage: 2 G
     Dates: start: 20200820, end: 20200820
  50. VANCOMYCIN [Concomitant]
     Active Substance: VANCOMYCIN
     Dosage: 500 MG
     Dates: start: 20200820, end: 20200821
  51. PROPOFOL. [Concomitant]
     Active Substance: PROPOFOL
     Indication: SEDATION
     Dosage: 5 AMPULE
     Route: 065
     Dates: start: 20200805, end: 20200815
  52. PROPOFOL. [Concomitant]
     Active Substance: PROPOFOL
     Dosage: 50 ML
     Route: 065
     Dates: start: 20200823, end: 20200823
  53. PROPOFOL. [Concomitant]
     Active Substance: PROPOFOL
     Dosage: 50 ML
     Route: 065
     Dates: start: 20200826, end: 20200828
  54. MIDAZOLAM. [Concomitant]
     Active Substance: MIDAZOLAM
     Dosage: 250 MG
     Route: 065
     Dates: start: 20200824, end: 20200829
  55. ROCURONIUM [Concomitant]
     Active Substance: ROCURONIUM BROMIDE
     Dosage: 25 ML
     Route: 065
     Dates: start: 20200809, end: 20200809
  56. FLEET ENEMA [Concomitant]
     Active Substance: SODIUM PHOSPHATE, DIBASIC\SODIUM PHOSPHATE, MONOBASIC
     Dosage: 1 UNIT
     Route: 065
     Dates: start: 20200821, end: 20200821
  57. DIAZEPAN [Concomitant]
     Active Substance: DIAZEPAM
     Indication: SEDATION
     Dates: start: 20200904, end: 20200905
  58. INSULIN [Concomitant]
     Active Substance: INSULIN NOS
     Dosage: 4 UNIT
     Dates: start: 20200808, end: 20200808
  59. CONCENTRATED RED CELLS [Concomitant]
     Active Substance: HUMAN RED BLOOD CELL
     Dosage: 2 UNIT
     Dates: start: 20200911, end: 20200911
  60. NORADRENALINE [NOREPINEPHRINE] [Concomitant]
     Active Substance: NOREPINEPHRINE
     Indication: SEPSIS
     Dosage: 16 ML
     Dates: start: 20200823, end: 20200829
  61. REMDESIVIR. [Suspect]
     Active Substance: REMDESIVIR
     Indication: COVID-19 PNEUMONIA
     Dosage: DATE OF MOST RECENT DOSE OF REMDESIVIR PRIOR TO EVENT ONSET: 06-AUG-2020 AT 14:30 HOURS
     Route: 042
     Dates: start: 20200731
  62. MEROPENEM. [Concomitant]
     Active Substance: MEROPENEM
     Indication: PNEUMONIA BACTERIAL
     Dosage: 500 MG
     Dates: start: 20200804, end: 20200814
  63. AZITHROMYCIN ANHYDROUS. [Concomitant]
     Active Substance: AZITHROMYCIN ANHYDROUS
     Indication: COVID-19 PNEUMONIA
  64. DEXAMETHASONE. [Concomitant]
     Active Substance: DEXAMETHASONE
     Dosage: 6 MG
     Route: 065
     Dates: start: 20200728, end: 20200809
  65. DEXAMETHASONE. [Concomitant]
     Active Substance: DEXAMETHASONE
     Dosage: 4 MG
     Route: 065
     Dates: start: 20200901, end: 20200901
  66. LEVOTHYROXINE. [Concomitant]
     Active Substance: LEVOTHYROXINE
     Indication: HYPOTHYROIDISM
     Dosage: ONGOING
     Route: 065
     Dates: end: 20200731
  67. EPINEPHRINE. [Concomitant]
     Active Substance: EPINEPHRINE
     Indication: INTENSIVE CARE
     Dosage: ONGOING
     Dates: start: 20200804
  68. CLONAZEPAM. [Concomitant]
     Active Substance: CLONAZEPAM
     Dosage: ONGOING
     Route: 065
     Dates: start: 20200802, end: 20200803
  69. FENTANYL. [Concomitant]
     Active Substance: FENTANYL
     Indication: SEDATION
     Dosage: 5 AMPULE
     Route: 065
     Dates: start: 20200805, end: 20200821
  70. HYDROCORTISONE. [Concomitant]
     Active Substance: HYDROCORTISONE
     Dosage: 200 MG
     Route: 065
     Dates: start: 20200731, end: 20200731
  71. ROCURONIUM [Concomitant]
     Active Substance: ROCURONIUM BROMIDE
     Dosage: 5 AMPULE
     Route: 065
     Dates: start: 20200811, end: 20200812
  72. BISACODYL. [Concomitant]
     Active Substance: BISACODYL
     Route: 065
     Dates: start: 20200814, end: 20200814
  73. SODIUM BICARBONATE. [Concomitant]
     Active Substance: SODIUM BICARBONATE
     Indication: RENAL FAILURE
     Dosage: 70 ML
     Dates: start: 20200902, end: 20200904
  74. POTASSIUM CHLORIDE. [Concomitant]
     Active Substance: POTASSIUM CHLORIDE
     Indication: HYPOKALAEMIA
     Dosage: 2 AMPULE
     Dates: start: 20200823, end: 20200823
  75. DIPYRONE [Concomitant]
     Active Substance: DIPYRONE
     Dates: start: 20200908, end: 20200908
  76. VANCOMYCIN [Concomitant]
     Active Substance: VANCOMYCIN
     Dosage: 1 G
     Dates: start: 20200813, end: 20200813
  77. VANCOMYCIN [Concomitant]
     Active Substance: VANCOMYCIN
     Dosage: 1 G
     Dates: start: 20200815, end: 20200815
  78. LEVOTHYROXINE. [Concomitant]
     Active Substance: LEVOTHYROXINE
     Dosage: 100 UG
     Dates: start: 20200731
  79. POLYMYXIN B. [Concomitant]
     Active Substance: POLYMYXIN B
     Dosage: 50 MG
     Dates: start: 20200811, end: 20200824
  80. FENTANYL. [Concomitant]
     Active Substance: FENTANYL
     Dosage: 50 UG
     Route: 065
     Dates: start: 20200824, end: 20200829
  81. ROCURONIUM [Concomitant]
     Active Substance: ROCURONIUM BROMIDE
     Indication: SEDATION
     Dosage: 25 ML
     Route: 065
     Dates: start: 20200805, end: 20200805
  82. SODIUM HEPARIN [Concomitant]
     Active Substance: HEPARIN SODIUM
     Indication: COVID-19
     Route: 065
     Dates: start: 20200806, end: 20200823
  83. INSULIN [Concomitant]
     Active Substance: INSULIN NOS
     Dosage: 6 UNIT
     Dates: start: 20200805, end: 20200805
  84. INSULIN [Concomitant]
     Active Substance: INSULIN NOS
     Dosage: 3 UNIT
     Dates: start: 20200909, end: 20200909
  85. INSULIN [Concomitant]
     Active Substance: INSULIN NOS
     Dosage: 6 UNIT
     Dates: start: 20200909, end: 20200909
  86. FUROSEMIDE. [Concomitant]
     Active Substance: FUROSEMIDE
     Indication: RENAL FAILURE
     Dates: start: 20200904, end: 20200907
  87. POTASSIUM CHLORIDE. [Concomitant]
     Active Substance: POTASSIUM CHLORIDE
     Dates: start: 20200901, end: 20200901
  88. LEVOFLOXACIN. [Concomitant]
     Active Substance: LEVOFLOXACIN
     Dates: start: 20200813, end: 20200818
  89. REMDESIVIR. [Suspect]
     Active Substance: REMDESIVIR
     Dosage: DATE OF MOST RECENT DOSE OF REMDESIVIR PRIOR TO EVENT ONSET: 06-AUG-2020 AT 14:30 HOURS
     Route: 042
     Dates: start: 20200806
  90. MEROPENEM. [Concomitant]
     Active Substance: MEROPENEM
     Indication: SEPSIS
     Dosage: 1 G
     Dates: start: 20200828, end: 20200902
  91. VANCOMYCIN [Concomitant]
     Active Substance: VANCOMYCIN
     Dosage: 2 G
     Dates: start: 20200804, end: 20200804
  92. VANCOMYCIN [Concomitant]
     Active Substance: VANCOMYCIN
     Dosage: 500 MG
     Dates: start: 20200830, end: 20200830
  93. OMEPRAZOLE. [Concomitant]
     Active Substance: OMEPRAZOLE
     Indication: STRESS ULCER
     Dosage: ONGOING
     Dates: start: 20200728, end: 20200913
  94. EPINEPHRINE. [Concomitant]
     Active Substance: EPINEPHRINE
     Indication: PNEUMONIA BACTERIAL
     Dosage: 10 MG
     Route: 065
     Dates: start: 20200805, end: 20200822
  95. CLONAZEPAM. [Concomitant]
     Active Substance: CLONAZEPAM
     Indication: INSOMNIA
     Dosage: .5 MG
     Route: 065
     Dates: start: 20200728, end: 20200731
  96. CEFTRIAXONE. [Concomitant]
     Active Substance: CEFTRIAXONE
     Indication: COVID-19 PNEUMONIA
     Dates: start: 20200727, end: 20200727
  97. CEFTRIAXONE. [Concomitant]
     Active Substance: CEFTRIAXONE
     Indication: COVID-19 PNEUMONIA
     Dosage: ONGOING
     Dates: start: 20200728, end: 20200803
  98. MIDAZOLAM. [Concomitant]
     Active Substance: MIDAZOLAM
     Dosage: 250 MG
     Route: 065
     Dates: start: 20200803, end: 20200803
  99. PREDNISONE. [Concomitant]
     Active Substance: PREDNISONE
     Indication: COVID-19
     Dosage: 25 MG
     Route: 045
     Dates: start: 20200812, end: 20200814
  100. HYDROCORTISONE. [Concomitant]
     Active Substance: HYDROCORTISONE
     Dosage: 100 MG
     Route: 065
     Dates: start: 20200820, end: 20200823
  101. HYDROCORTISONE. [Concomitant]
     Active Substance: HYDROCORTISONE
     Dosage: 200 MG
     Route: 065
     Dates: start: 20200902, end: 20200911
  102. CEFTAZIDIME. [Concomitant]
     Active Substance: CEFTAZIDIME
     Dosage: 1 G
     Route: 065
     Dates: start: 20200905, end: 20200913
  103. HEPARIN [Concomitant]
     Active Substance: HEPARIN SODIUM
     Indication: COVID-19
     Route: 065
     Dates: start: 20200905, end: 20200905
  104. RED BLOOD CELLS, CONCENTRATED [Concomitant]
     Active Substance: HUMAN RED BLOOD CELL
  105. INSULIN [Concomitant]
     Active Substance: INSULIN NOS
     Indication: HYPERGLYCAEMIA
     Dosage: 4 UNIT
     Dates: start: 20200805, end: 20200805
  106. INSULIN [Concomitant]
     Active Substance: INSULIN NOS
     Dosage: 6 UNIT
     Dates: start: 20200806, end: 20200806
  107. ONDANSETRON [Concomitant]
     Active Substance: ONDANSETRON
     Dates: start: 20200831, end: 20200901
  108. ADRENALINE [EPINEPHRINE] [Concomitant]
     Active Substance: EPINEPHRINE
     Indication: HYPOTENSION
     Dates: start: 20200803, end: 20200803
  109. NORADRENALINE [NOREPINEPHRINE] [Concomitant]
     Active Substance: NOREPINEPHRINE
     Dosage: 32 ML
     Dates: start: 20200913, end: 20200914
  110. MEROPENEM. [Concomitant]
     Active Substance: MEROPENEM
     Dosage: 1 G
     Dates: start: 20200821, end: 20200824
  111. MEROPENEM. [Concomitant]
     Active Substance: MEROPENEM
     Dosage: 1 G
     Dates: start: 20200828, end: 20200901
  112. VANCOMYCIN [Concomitant]
     Active Substance: VANCOMYCIN
     Indication: PNEUMONIA BACTERIAL
     Dates: start: 20200804, end: 20200811
  113. VANCOMYCIN [Concomitant]
     Active Substance: VANCOMYCIN
     Dosage: 500 MG
     Dates: start: 20200828, end: 20200828
  114. DEXAMETHASONE. [Concomitant]
     Active Substance: DEXAMETHASONE
     Indication: COVID-19
     Route: 065
     Dates: start: 20200727, end: 20200727
  115. DEXAMETHASONE. [Concomitant]
     Active Substance: DEXAMETHASONE
     Dosage: 4 MG
     Route: 065
     Dates: start: 20200824, end: 20200830
  116. CLARITHROMYCIN. [Concomitant]
     Active Substance: CLARITHROMYCIN
     Indication: COVID-19 PNEUMONIA
     Dosage: 500 MG
     Dates: start: 20200727, end: 20200727
  117. CLARITHROMYCIN. [Concomitant]
     Active Substance: CLARITHROMYCIN
     Indication: COVID-19 PNEUMONIA
     Dosage: ONGOING
     Dates: start: 20200729, end: 20200803
  118. EPINEPHRINE. [Concomitant]
     Active Substance: EPINEPHRINE
     Indication: SEPSIS
     Dosage: 10 MG
     Route: 065
     Dates: start: 20200803, end: 20200803
  119. MIDAZOLAM. [Concomitant]
     Active Substance: MIDAZOLAM
     Indication: SEDATION
     Dosage: 250 MG
     Route: 065
     Dates: start: 20200807, end: 20200819
  120. MIDAZOLAM. [Concomitant]
     Active Substance: MIDAZOLAM
     Dosage: 500 MG
     Route: 065
     Dates: start: 20200830, end: 20200903
  121. ROCURONIUM [Concomitant]
     Active Substance: ROCURONIUM BROMIDE
     Dosage: 50 MG
     Route: 065
     Dates: start: 20200819, end: 20200819
  122. METHADONE [Concomitant]
     Active Substance: METHADONE HYDROCHLORIDE
     Indication: SEDATION
     Dates: start: 20200904, end: 20200904
  123. INSULIN [Concomitant]
     Active Substance: INSULIN NOS
     Dosage: 1 UNIT
     Dates: start: 20200814, end: 20200814
  124. POTASSIUM CHLORIDE. [Concomitant]
     Active Substance: POTASSIUM CHLORIDE
     Dates: start: 20200904, end: 20200904
  125. NORADRENALINE [NOREPINEPHRINE] [Concomitant]
     Active Substance: NOREPINEPHRINE
     Dosage: 32 ML
     Dates: start: 20200911, end: 20200911
  126. POTASSIUM PHOSPHATES [Concomitant]
     Active Substance: POTASSIUM PHOSPHATE, DIBASIC\POTASSIUM PHOSPHATE, MONOBASIC
  127. ADRENALINE [EPINEPHRINE] [Concomitant]
     Active Substance: EPINEPHRINE

REACTIONS (6)
  - Cerebrovascular accident [Not Recovered/Not Resolved]
  - Sepsis [Not Recovered/Not Resolved]
  - Acute kidney injury [Recovering/Resolving]
  - Sepsis [Recovering/Resolving]
  - Pneumonia bacterial [Recovering/Resolving]
  - Pulmonary sepsis [Recovered/Resolved]

NARRATIVE: CASE EVENT DATE: 20200804
